FAERS Safety Report 25265449 (Version 1)
Quarter: 2025Q2

REPORT INFORMATION
  Report Type: Spontaneous
  Country: US (occurrence: US)
  Receive Date: 20250502
  Receipt Date: 20250502
  Transmission Date: 20250717
  Serious: Yes (Hospitalization, Other)
  Sender: MERCK SHARP & DOHME LLC
  Company Number: US-009507513-2282001

PATIENT
  Sex: Male

DRUGS (1)
  1. VERQUVO [Suspect]
     Active Substance: VERICIGUAT
     Indication: Product used for unknown indication
     Route: 048
     Dates: start: 202504

REACTIONS (2)
  - Ventricular tachycardia [Unknown]
  - Cardiac failure chronic [Unknown]

NARRATIVE: CASE EVENT DATE: 20250401
